FAERS Safety Report 5608659-8 (Version None)
Quarter: 2008Q1

REPORT INFORMATION
  Report Type: 
  Country: None (occurrence: None)
  Receive Date: 20080130
  Receipt Date: 20080125
  Transmission Date: 20080703
  Serious: Yes (Other)
  Sender: FDA-Public Use
  Company Number: US-PFIZER INC-2007054585

PATIENT
  Sex: Male
  Weight: 79 kg

DRUGS (6)
  1. SUTENT [Suspect]
     Indication: METASTATIC MALIGNANT MELANOMA
     Route: 048
     Dates: start: 20070217, end: 20070507
  2. SIROLIMUS [Suspect]
     Indication: METASTATIC MALIGNANT MELANOMA
     Route: 048
     Dates: start: 20070217, end: 20070515
  3. OXYCODONE [Concomitant]
     Route: 048
  4. VITAMIN CAP [Concomitant]
     Dosage: TEXT:1-FREQ:QD
     Route: 048
  5. ADVIL LIQUI-GELS [Concomitant]
     Indication: HEADACHE
     Dosage: TEXT:200-400MG-FREQ:PRN
     Route: 048
  6. PREDNISONE TAB [Concomitant]
     Indication: RHEUMATOID ARTHRITIS
     Dosage: TEXT:15 MG INCREASED TO 60 MG-FREQ:BID
     Route: 048

REACTIONS (1)
  - PNEUMONITIS [None]
